FAERS Safety Report 14063178 (Version 6)
Quarter: 2019Q1

REPORT INFORMATION
  Report Type: Spontaneous
  Country: JP (occurrence: JP)
  Receive Date: 20171009
  Receipt Date: 20190225
  Transmission Date: 20190417
  Serious: Yes (Other)
  Sender: FDA-Public Use
  Company Number: JP-JNJFOC-20171007628

PATIENT
  Age: 73 Year
  Sex: Male
  Weight: 66 kg

DRUGS (6)
  1. CANAGLU [Suspect]
     Active Substance: CANAGLIFLOZIN
     Indication: TYPE 2 DIABETES MELLITUS
     Route: 048
     Dates: start: 20150624
  2. ATORVASTATIN [Concomitant]
     Active Substance: ATORVASTATIN
     Route: 048
     Dates: start: 20130308
  3. CILOSTAZOL. [Concomitant]
     Active Substance: CILOSTAZOL
     Route: 048
     Dates: start: 20130306
  4. AMLODIPINE [Concomitant]
     Active Substance: AMLODIPINE BESYLATE
     Route: 048
     Dates: start: 20130321
  5. JANUVIA [Concomitant]
     Active Substance: SITAGLIPTIN PHOSPHATE
     Indication: TYPE 2 DIABETES MELLITUS
     Dosage: BEFORE ADMINISTRATION OF CANAGLIFLOZIN
     Route: 048
  6. GLIMEPIRIDE. [Concomitant]
     Active Substance: GLIMEPIRIDE
     Indication: TYPE 2 DIABETES MELLITUS
     Dosage: BEFORE ADMINISTRATION OF CANAGLIFLOZIN
     Route: 048

REACTIONS (7)
  - Cervicobrachial syndrome [Recovered/Resolved]
  - Hepatic function abnormal [Recovered/Resolved]
  - Gastric ulcer [Recovering/Resolving]
  - Diarrhoea [Recovered/Resolved]
  - Rhinitis allergic [Recovered/Resolved]
  - Dermatitis contact [Recovered/Resolved]
  - Constipation [Recovered/Resolved]

NARRATIVE: CASE EVENT DATE: 20160330
